FAERS Safety Report 12155995 (Version 10)
Quarter: 2019Q1

REPORT INFORMATION
  Report Type: Spontaneous
  Country: JP (occurrence: JP)
  Receive Date: 20160307
  Receipt Date: 20190108
  Transmission Date: 20190417
  Serious: Yes (Other)
  Sender: FDA-Public Use
  Company Number: PHJP2016JP004375

PATIENT
  Age: 69 Year
  Sex: Female
  Weight: 46 kg

DRUGS (6)
  1. COSENTYX [Suspect]
     Active Substance: SECUKINUMAB
     Indication: PSORIATIC ARTHROPATHY
     Dosage: 150 MG, QW
     Route: 058
     Dates: start: 20160218, end: 20160225
  2. COSENTYX [Suspect]
     Active Substance: SECUKINUMAB
     Dosage: 150 MG, 4W
     Route: 058
     Dates: start: 20160324
  3. CONIEL [Concomitant]
     Active Substance: BENIDIPINE HYDROCHLORIDE
     Indication: HYPERTENSION
     Dosage: 1 DF, QD
     Route: 048
     Dates: start: 20120426
  4. URINORM//BENZBROMARONE [Concomitant]
     Indication: HYPERURICAEMIA
     Dosage: 1 DF, BID
     Route: 048
     Dates: start: 20150806
  5. COSENTYX [Suspect]
     Active Substance: SECUKINUMAB
     Indication: PUSTULAR PSORIASIS
     Dosage: 150 MG, QW
     Route: 058
     Dates: start: 20160128
  6. URSO [Concomitant]
     Active Substance: URSODIOL
     Indication: HEPATIC FUNCTION ABNORMAL
     Dosage: 1 DF, BID
     Route: 048
     Dates: start: 20120927

REACTIONS (11)
  - Lymphocytic infiltration [Unknown]
  - Haemorrhage subepidermal [Unknown]
  - Pneumatosis [Unknown]
  - Drug eruption [Recovered/Resolved]
  - Flushing [Unknown]
  - Eosinophilia [Unknown]
  - Chest X-ray abnormal [Unknown]
  - Rash [Unknown]
  - Cystitis [Recovered/Resolved]
  - Erythema [Unknown]
  - Blood beta-D-glucan increased [Recovered/Resolved]

NARRATIVE: CASE EVENT DATE: 20160222
